FAERS Safety Report 10671904 (Version 2)
Quarter: 2015Q1

REPORT INFORMATION
  Report Type: Spontaneous
  Country: FR (occurrence: FR)
  Receive Date: 20141223
  Receipt Date: 20150302
  Transmission Date: 20150720
  Serious: Yes (Hospitalization)
  Sender: FDA-Public Use
  Company Number: FR-ASTELLAS-2014US020753

PATIENT
  Sex: Male
  Weight: 110 kg

DRUGS (1)
  1. BETMIGA [Suspect]
     Active Substance: MIRABEGRON
     Indication: URINARY INCONTINENCE
     Dosage: UNK, UNKNOWN FREQ.
     Route: 065

REACTIONS (2)
  - Coronary artery disease [Unknown]
  - Interventricular septum rupture [Unknown]
